FAERS Safety Report 7554759-5 (Version None)
Quarter: 2011Q2

REPORT INFORMATION
  Report Type: 
  Country: None (occurrence: None)
  Receive Date: 20110617
  Receipt Date: 20110607
  Transmission Date: 20111010
  Serious: Yes (Hospitalization)
  Sender: FDA-Public Use
  Company Number: US-ROCHE-782130

PATIENT

DRUGS (5)
  1. OCTREOTIDE ACETATE [Suspect]
     Dosage: TEST DOSE.  SHORT-ACTING OCTREOTIDE 100MCG SQ, DAY 1, CYCLE 1 ONLY
     Route: 058
     Dates: start: 20100428
  2. LIDOCAINE [Suspect]
     Route: 061
  3. OXYCODONE HCL [Suspect]
     Route: 065
  4. BEVACIZUMAB [Suspect]
     Dosage: OVER 30-90 MIN, DAY 1, LAST DOSE PRIOR TO SAE: 30 SEP 2010 CYCLE: 21 DAYS
     Route: 042
     Dates: start: 20100428
  5. OCTREOTIDE ACETATE [Suspect]
     Dosage: OCTREOTIDE LAR DEPOT:  20MG IM, DAY 1
     Route: 030

REACTIONS (9)
  - CONFUSIONAL STATE [None]
  - OESOPHAGITIS [None]
  - PNEUMONITIS [None]
  - HYPOXIA [None]
  - URINARY TRACT INFECTION [None]
  - ABDOMINAL PAIN [None]
  - NON-CARDIAC CHEST PAIN [None]
  - LUNG INFECTION [None]
  - DYSPEPSIA [None]
